FAERS Safety Report 8959204 (Version 2)
Quarter: 2013Q1

REPORT INFORMATION
  Report Type: Report from Study
  Country: US (occurrence: US)
  Receive Date: 20121212
  Receipt Date: 20130115
  Transmission Date: 20140127
  Serious: Yes (Hospitalization, Disabling)
  Sender: FDA-Public Use
  Company Number: US-ROCHE-1167647

PATIENT
  Age: 64 Year
  Sex: Female
  Weight: 68 kg

DRUGS (7)
  1. BEVACIZUMAB [Suspect]
     Indication: GLIOBLASTOMA
     Route: 042
     Dates: start: 20120424, end: 20121119
  2. TEMODAR [Suspect]
     Indication: GLIOBLASTOMA
     Route: 048
     Dates: start: 20120203, end: 20121119
  3. COLACE [Concomitant]
     Route: 065
  4. SIMVASTATINE [Concomitant]
     Route: 065
  5. CYMBALTA [Concomitant]
     Route: 065
  6. KEPPRA [Concomitant]
     Route: 065
  7. ASPIRIN [Concomitant]
     Route: 065

REACTIONS (2)
  - Blindness [Not Recovered/Not Resolved]
  - Abasia [Not Recovered/Not Resolved]
